FAERS Safety Report 8182200-0 (Version None)
Quarter: 2012Q1

REPORT INFORMATION
  Report Type: 
  Country: None (occurrence: None)
  Receive Date: 20120302
  Receipt Date: 20120222
  Transmission Date: 20120608
  Serious: Yes (Other)
  Sender: FDA-Public Use
  Company Number: US-ASTRAZENECA-2011SE36073

PATIENT
  Age: 37 Year
  Sex: Male
  Weight: 108 kg

DRUGS (7)
  1. SEROQUEL [Suspect]
     Indication: BIPOLAR DISORDER
     Route: 048
  2. LAMICTAL [Concomitant]
  3. SEROQUEL [Suspect]
     Route: 048
  4. LISINOPRIL [Concomitant]
  5. SEROQUEL [Suspect]
     Route: 048
  6. BYSTOLIC [Concomitant]
  7. NIACIN [Concomitant]

REACTIONS (6)
  - CARDIAC DISORDER [None]
  - TREMOR [None]
  - WEIGHT INCREASED [None]
  - DYSKINESIA [None]
  - DRUG DEPENDENCE [None]
  - WITHDRAWAL SYNDROME [None]
